FAERS Safety Report 20536610 (Version 1)
Quarter: 2022Q1

REPORT INFORMATION
  Report Type: Spontaneous
  Country: HR (occurrence: HR)
  Receive Date: 20220302
  Receipt Date: 20220302
  Transmission Date: 20220423
  Serious: Yes (Hospitalization, Other)
  Sender: FDA-Public Use
  Company Number: None

PATIENT
  Age: 57 Year
  Sex: Male
  Weight: 94 kg

DRUGS (1)
  1. STELARA [Suspect]
     Active Substance: USTEKINUMAB
     Indication: Psoriasis
     Route: 042
     Dates: start: 20101030, end: 20210723

REACTIONS (2)
  - Haematuria [Recovered/Resolved]
  - Renal cancer [Unknown]

NARRATIVE: CASE EVENT DATE: 20210101
